FAERS Safety Report 7712575-5 (Version None)
Quarter: 2011Q3

REPORT INFORMATION
  Report Type: 
  Country: None (occurrence: None)
  Receive Date: 20110822
  Receipt Date: 20110812
  Transmission Date: 20111222
  Serious: Yes (Other)
  Sender: FDA-Public Use
  Company Number: TPA2011A04799

PATIENT
  Age: 76 Year
  Sex: Female

DRUGS (1)
  1. ACTOS [Suspect]

REACTIONS (1)
  - BLADDER TRANSITIONAL CELL CARCINOMA [None]
